FAERS Safety Report 5430067-3 (Version None)
Quarter: 2007Q3

REPORT INFORMATION
  Report Type: 
  Country: None (occurrence: None)
  Receive Date: 20070829
  Receipt Date: 20070821
  Transmission Date: 20080115
  Serious: Yes (Other)
  Sender: FDA-Public Use
  Company Number: JP-PFIZER INC-2007069696

PATIENT
  Age: 28 Year
  Sex: Male

DRUGS (2)
  1. ZOLOFT [Suspect]
     Indication: PANIC DISORDER
     Dosage: DAILY DOSE:50MG-TEXT:TDD:50MG
     Route: 048
     Dates: start: 20070101, end: 20070820
  2. DOGMATYL [Concomitant]
     Route: 048

REACTIONS (2)
  - PANIC DISORDER [None]
  - SUICIDAL IDEATION [None]
